FAERS Safety Report 4315629-9 (Version None)
Quarter: 2004Q1

REPORT INFORMATION
  Report Type: 
  Country: None (occurrence: None)
  Receive Date: 20040311
  Receipt Date: 20040106
  Transmission Date: 20041129
  Serious: Yes (Hospitalization)
  Sender: FDA-Public Use
  Company Number: JP-GLAXOSMITHKLINE-B0319293A

PATIENT
  Age: 82 Year
  Sex: Female

DRUGS (7)
  1. VALACYCLOVIR HCL [Suspect]
     Indication: HERPES ZOSTER
     Dosage: 3000MG PER DAY
     Route: 048
     Dates: start: 20031212, end: 20031220
  2. FLUVOXAMINE MALEATE [Suspect]
     Indication: DEPRESSIVE SYMPTOM
     Dosage: 100MG PER DAY
     Route: 048
     Dates: end: 20031212
  3. TIAPRIDE HYDROCHLORIDE [Concomitant]
     Indication: DEPRESSIVE SYMPTOM
     Dosage: 50MG PER DAY
     Route: 048
     Dates: end: 20031220
  4. BENIDIPINE HYDROCHLORIDE [Concomitant]
     Indication: HYPERTENSION
     Dosage: 4MG PER DAY
     Route: 048
     Dates: end: 20031220
  5. CIMETIDINE HCL [Concomitant]
     Indication: GASTRIC ULCER
     Dosage: 400MG PER DAY
     Route: 048
     Dates: end: 20031220
  6. DOMPERIDONE [Concomitant]
     Indication: NAUSEA
     Dosage: 20MG PER DAY
     Route: 048
     Dates: end: 20031212
  7. LOXOPROFEN SODIUM [Concomitant]
     Indication: HERPES ZOSTER
     Dosage: 180MG PER DAY
     Route: 048
     Dates: end: 20031212

REACTIONS (11)
  - ANOREXIA [None]
  - BLOOD CREATININE INCREASED [None]
  - BLOOD UREA INCREASED [None]
  - CEREBRAL ATROPHY [None]
  - CEREBRAL ISCHAEMIA [None]
  - DEHYDRATION [None]
  - DEPRESSED LEVEL OF CONSCIOUSNESS [None]
  - MIOSIS [None]
  - PRESCRIBED OVERDOSE [None]
  - SOMNOLENCE [None]
  - SPEECH DISORDER [None]
